FAERS Safety Report 8585721-1 (Version None)
Quarter: 2012Q3

REPORT INFORMATION
  Report Type: 
  Country: None (occurrence: None)
  Receive Date: 20120810
  Receipt Date: 20120803
  Transmission Date: 20120928
  Serious: Yes (Hospitalization)
  Sender: FDA-Public Use
  Company Number: IT-PFIZER INC-2012170315

PATIENT
  Age: 82 Year
  Sex: Male

DRUGS (9)
  1. ESOMEPRAZOLE [Concomitant]
     Dosage: UNK
  2. RAMIPRIL [Suspect]
     Indication: HYPERTENSION
     Dosage: 2.5 MG, DAILY
     Route: 048
     Dates: start: 20090101, end: 20120707
  3. LASIX [Suspect]
     Indication: HYPERTENSION
     Dosage: 75 MG, DAILY
     Route: 048
     Dates: start: 20090101, end: 20120707
  4. MONOKET [Concomitant]
     Dosage: UNK
  5. ALDACTONE [Suspect]
     Indication: HYPERTENSION
     Dosage: 25 MG, DAILY
     Route: 048
     Dates: start: 20110101, end: 20120704
  6. IVABRADINE [Concomitant]
     Dosage: UNK
  7. ASPIRIN [Concomitant]
     Dosage: UNK
  8. HUMALOG [Concomitant]
     Dosage: UNK
  9. LANTUS [Concomitant]
     Dosage: UNK

REACTIONS (3)
  - RENAL FAILURE ACUTE [None]
  - METABOLIC ACIDOSIS [None]
  - HYPERKALAEMIA [None]
